FAERS Safety Report 21290870 (Version 6)
Quarter: 2023Q2

REPORT INFORMATION
  Report Type: Spontaneous
  Country: CA (occurrence: CA)
  Receive Date: 20220903
  Receipt Date: 20230523
  Transmission Date: 20230721
  Serious: Yes (Other)
  Sender: FDA-Public Use
  Company Number: CA-CELLTRION INC.-2022CA014363

PATIENT

DRUGS (5)
  1. INFLECTRA [Suspect]
     Active Substance: INFLIXIMAB-DYYB
     Indication: Colitis ulcerative
     Dosage: 600 MG EVERY 4 WEEK, NO INDUCTION PRESCRIBED, REMICADE SWITCH
     Route: 042
     Dates: start: 20210316
  2. INFLECTRA [Suspect]
     Active Substance: INFLIXIMAB-DYYB
     Dosage: 600 MG EVERY 4 WEEK
     Route: 042
     Dates: start: 20220921
  3. INFLECTRA [Suspect]
     Active Substance: INFLIXIMAB-DYYB
     Dosage: 600 MG EVERY 4 WEEK
     Route: 042
     Dates: start: 20221019
  4. INFLECTRA [Suspect]
     Active Substance: INFLIXIMAB-DYYB
     Dosage: 600 MG EVERY 4 WEEK
     Route: 042
     Dates: start: 20230210
  5. INFLECTRA [Suspect]
     Active Substance: INFLIXIMAB-DYYB
     Dosage: UNK
     Route: 042
     Dates: start: 202304

REACTIONS (8)
  - Weight increased [Unknown]
  - Off label use [Unknown]
  - Off label use [Unknown]
  - Weight decreased [Not Recovered/Not Resolved]
  - Eye infection [Recovering/Resolving]
  - Headache [Unknown]
  - Nausea [Unknown]
  - Pruritus [Unknown]

NARRATIVE: CASE EVENT DATE: 20210316
